FAERS Safety Report 7240927-9 (Version None)
Quarter: 2011Q1

REPORT INFORMATION
  Report Type: 
  Country: None (occurrence: None)
  Receive Date: 20110124
  Receipt Date: 20110118
  Transmission Date: 20110831
  Serious: Yes (Death)
  Sender: FDA-Public Use
  Company Number: PHHY2010DE63025

PATIENT
  Sex: Male
  Weight: 84 kg

DRUGS (1)
  1. AMN107 [Suspect]
     Indication: CHRONIC MYELOID LEUKAEMIA
     Dosage: 400 MG, BID
     Route: 048
     Dates: start: 20100714

REACTIONS (6)
  - PLATELET COUNT DECREASED [None]
  - TRANSAMINASES INCREASED [None]
  - PULMONARY EMBOLISM [None]
  - DYSPNOEA [None]
  - PYREXIA [None]
  - WHITE BLOOD CELL COUNT DECREASED [None]
